FAERS Safety Report 24912378 (Version 1)
Quarter: 2025Q1

REPORT INFORMATION
  Report Type: Spontaneous
  Country: CA (occurrence: CA)
  Receive Date: 20250131
  Receipt Date: 20250131
  Transmission Date: 20250408
  Serious: Yes (Life-Threatening)
  Sender: GE HEALTHCARE
  Company Number: CA-GE HEALTHCARE-2025CSU001120

PATIENT
  Age: 61 Year
  Sex: Female

DRUGS (1)
  1. OMNIPAQUE [Suspect]
     Active Substance: IOHEXOL
     Indication: Diagnostic procedure
     Route: 048

REACTIONS (2)
  - Syncope [Recovered/Resolved]
  - Oral pruritus [Recovered/Resolved]
